FAERS Safety Report 5204338-X (Version None)
Quarter: 2007Q1

REPORT INFORMATION
  Report Type: 
  Country: None (occurrence: None)
  Receive Date: 20070110
  Receipt Date: 20060221
  Transmission Date: 20070707
  Serious: No
  Sender: FDA-Public Use
  Company Number: US-BRISTOL-MYERS SQUIBB COMPANY-13290689

PATIENT
  Sex: Male
  Weight: 68 kg

DRUGS (5)
  1. ABILIFY [Suspect]
     Dosage: DOSAGE: BETWEEN 12.5MG AND 25MG
     Route: 048
  2. SEROQUEL [Concomitant]
  3. VYTORIN [Concomitant]
  4. XANAX [Concomitant]
  5. OMEPRAZOLE [Concomitant]

REACTIONS (2)
  - MUSCULAR WEAKNESS [None]
  - RESTLESS LEGS SYNDROME [None]
